FAERS Safety Report 10718659 (Version 2)
Quarter: 2015Q1

REPORT INFORMATION
  Report Type: Spontaneous
  Country: US (occurrence: US)
  Receive Date: 20150119
  Receipt Date: 20150119
  Transmission Date: 20150721
  Serious: Yes (Hospitalization)
  Sender: FDA-Public Use
  Company Number: US-UNITED THERAPEUTICS-UNT-2014-001654

PATIENT
  Sex: Female
  Weight: 58.51 kg

DRUGS (1)
  1. REMODULIN [Suspect]
     Active Substance: TREPROSTINIL
     Indication: COR PULMONALE CHRONIC
     Dosage: 0.035 ?G/KG, CONTINUING
     Route: 041
     Dates: start: 20131113

REACTIONS (4)
  - Injection site pruritus [Unknown]
  - Asthenia [Unknown]
  - Catheter site haemorrhage [Unknown]
  - Injection site swelling [Unknown]
